FAERS Safety Report 12520299 (Version 1)
Quarter: 2016Q3

REPORT INFORMATION
  Report Type: Spontaneous
  Country: GB (occurrence: GB)
  Receive Date: 20160701
  Receipt Date: 20160701
  Transmission Date: 20161109
  Serious: Yes (Hospitalization, Other)
  Sender: FDA-Public Use
  Company Number: GB-ROCHE-1785657

PATIENT
  Age: 32 Year
  Sex: Female

DRUGS (3)
  1. XELODA [Suspect]
     Active Substance: CAPECITABINE
     Indication: PRODUCT USED FOR UNKNOWN INDICATION
     Route: 065
  2. HERCEPTIN [Suspect]
     Active Substance: TRASTUZUMAB
     Indication: PRODUCT USED FOR UNKNOWN INDICATION
     Route: 065
  3. KADCYLA [Suspect]
     Active Substance: ADO-TRASTUZUMAB EMTANSINE
     Indication: PRODUCT USED FOR UNKNOWN INDICATION
     Route: 065

REACTIONS (14)
  - Hepatic lesion [Unknown]
  - Bile duct obstruction [Unknown]
  - Hyperbilirubinaemia [Unknown]
  - Liver disorder [Unknown]
  - Biliary sepsis [Unknown]
  - Device related infection [Unknown]
  - Amenorrhoea [Unknown]
  - Oedema [Unknown]
  - Coagulopathy [Unknown]
  - Rash [Unknown]
  - Lung infiltration [Unknown]
  - Gastrointestinal haemorrhage [Unknown]
  - Clostridium difficile colitis [Unknown]
  - Neutropenia [Unknown]

NARRATIVE: CASE EVENT DATE: 200906
